FAERS Safety Report 9016228 (Version 2)
Quarter: 2013Q3

REPORT INFORMATION
  Report Type: Spontaneous
  Country: US (occurrence: US)
  Receive Date: 20130116
  Receipt Date: 20130906
  Transmission Date: 20140515
  Serious: Yes (Death, Hospitalization)
  Sender: FDA-Public Use
  Company Number: US-B.I. PHARMACEUTICALS,INC./RIDGEFIELD-2013-BI-00930BP

PATIENT
  Age: 86 Year
  Sex: Female
  Weight: 58.97 kg

DRUGS (15)
  1. PRADAXA [Suspect]
     Dosage: 300 MG
     Dates: start: 20111229, end: 20120106
  2. COREG [Concomitant]
     Dosage: 6.25 MG
  3. TRAMADOL [Concomitant]
     Indication: PAIN
     Dosage: 100 MG
  4. ARICEPT [Concomitant]
     Dosage: 5 MG
  5. ALPRAZOLAM [Concomitant]
     Dosage: 0.5 MG
  6. FLEXERIL [Concomitant]
     Dosage: 20 MG
  7. LIPITOR [Concomitant]
     Dosage: 40 MG
  8. PLAVIX [Concomitant]
     Dosage: 75 MG
  9. CYMBALTA [Concomitant]
     Dosage: 30 MG
  10. SEROQUEL [Concomitant]
     Dosage: 25 MG
  11. TIMOLOL [Concomitant]
     Route: 031
  12. LATANOPROST [Concomitant]
     Route: 031
  13. PROMOD POWDER [Concomitant]
  14. GERITOL [Concomitant]
  15. PEPCID AC [Concomitant]

REACTIONS (6)
  - Gastrointestinal haemorrhage [Fatal]
  - Septic shock [Fatal]
  - Hypovolaemic shock [Fatal]
  - Disseminated intravascular coagulation [Fatal]
  - Anaemia [Unknown]
  - Hypotension [Unknown]
